FAERS Safety Report 5953736-5 (Version None)
Quarter: 2008Q4

REPORT INFORMATION
  Report Type: 
  Country: None (occurrence: None)
  Receive Date: 20081114
  Receipt Date: 20081110
  Transmission Date: 20090506
  Serious: Yes (Other)
  Sender: FDA-Public Use
  Company Number: DE-ASTRAZENECA-2008PK02375

PATIENT
  Sex: Female
  Weight: 85 kg

DRUGS (2)
  1. SEROQUEL [Suspect]
     Indication: HALLUCINATION
     Route: 048
     Dates: start: 20040101, end: 20081031
  2. LORAZEPAM [Concomitant]
     Indication: HALLUCINATION
     Route: 048
     Dates: start: 20040101

REACTIONS (1)
  - NEUTROPENIA [None]
